FAERS Safety Report 21637187 (Version 2)
Quarter: 2023Q4

REPORT INFORMATION
  Report Type: Report from Study
  Country: US (occurrence: US)
  Receive Date: 20221124
  Receipt Date: 20231124
  Transmission Date: 20240109
  Serious: Yes (Other)
  Sender: FDA-Public Use
  Company Number: US-TAKEDA-2020TUS057333

PATIENT
  Sex: Female

DRUGS (1)
  1. HUMAN IMMUNOGLOBULIN G [Suspect]
     Active Substance: HUMAN IMMUNOGLOBULIN G
     Indication: Hypogammaglobulinaemia
     Dosage: UNK
     Route: 058

REACTIONS (8)
  - Neuropathy peripheral [Unknown]
  - Skin disorder [Unknown]
  - Infection [Recovering/Resolving]
  - Axillary mass [Unknown]
  - Limb mass [Unknown]
  - Hypoaesthesia [Unknown]
  - Hypersensitivity [Unknown]
  - Paraesthesia [Unknown]
